FAERS Safety Report 7184113-X (Version None)
Quarter: 2010Q4

REPORT INFORMATION
  Report Type: 
  Country: None (occurrence: None)
  Receive Date: 20101222
  Receipt Date: 20101216
  Transmission Date: 20110411
  Serious: Yes (Death, Other)
  Sender: FDA-Public Use
  Company Number: PHHY2010ES86488

PATIENT
  Age: 77 Year
  Sex: Female

DRUGS (6)
  1. ZOLEDRONATE [Suspect]
     Indication: MULTIPLE MYELOMA
     Dosage: 4 MG, QMO
  2. MELPHALAN [Suspect]
     Indication: MULTIPLE MYELOMA
     Dosage: 0.25 MG/KG, DAYS 1-4
  3. PREDNISONE [Suspect]
     Indication: MULTIPLE MYELOMA
     Dosage: 100 MG, DAYS 1-4
  4. RADIOTHERAPY [Concomitant]
  5. BORTEZOMIB [Concomitant]
     Dosage: 1.3 MG/M2, DAYS 1, 8, 15, AND 22
  6. DEXAMETHASONE [Concomitant]
     Dosage: 40 MG, IN THREE 4-WEEK CYCLES

REACTIONS (6)
  - CARDIAC FAILURE CONGESTIVE [None]
  - MYELODYSPLASTIC SYNDROME [None]
  - MYOCARDIAL ISCHAEMIA [None]
  - NORMOCHROMIC NORMOCYTIC ANAEMIA [None]
  - OSTEOLYSIS [None]
  - REFRACTORY CYTOPENIA WITH MULTILINEAGE DYSPLASIA [None]
